FAERS Safety Report 5495081-0 (Version None)
Quarter: 2007Q4

REPORT INFORMATION
  Report Type: 
  Country: None (occurrence: None)
  Receive Date: 20071015
  Receipt Date: 20070213
  Transmission Date: 20080405
  Serious: Yes (Other)
  Sender: FDA-Public Use
  Company Number: S07-USA-00672-01

PATIENT
  Age: 50 Year
  Sex: Male

DRUGS (4)
  1. LEXAPRO [Suspect]
     Indication: DEPRESSION
     Dosage: 10 MG BID PO
     Route: 048
     Dates: start: 20061124, end: 20070110
  2. LEXAPRO [Suspect]
     Indication: DEPRESSION
     Dosage: 10 MG QD PO
     Route: 048
     Dates: start: 20061110, end: 20061123
  3. METOPROLOL [Concomitant]
  4. CLONIDINE [Concomitant]

REACTIONS (3)
  - CONFUSIONAL STATE [None]
  - ERECTILE DYSFUNCTION [None]
  - SUICIDAL IDEATION [None]
